FAERS Safety Report 6214725-9 (Version None)
Quarter: 2009Q2

REPORT INFORMATION
  Report Type: 
  Country: None (occurrence: None)
  Receive Date: 20090604
  Receipt Date: 20090528
  Transmission Date: 20091009
  Serious: Yes (Other)
  Sender: FDA-Public Use
  Company Number: A0787113A

PATIENT
  Age: 18 Year
  Sex: Female

DRUGS (5)
  1. LAMOTRIGINE [Suspect]
     Indication: BIPOLAR DISORDER
     Dosage: 150MG VARIABLE DOSE
     Route: 048
     Dates: start: 20040101
  2. PROZAC [Concomitant]
  3. MINOCYCLINE HCL [Concomitant]
  4. CONCERTA [Concomitant]
  5. UNSPECIFIED INHALER [Concomitant]
     Route: 055

REACTIONS (4)
  - CONDITION AGGRAVATED [None]
  - DEPRESSION [None]
  - MOOD SWINGS [None]
  - SUICIDE ATTEMPT [None]
